FAERS Safety Report 9160664 (Version 2)
Quarter: 2013Q1

REPORT INFORMATION
  Report Type: Spontaneous
  Country: US (occurrence: US)
  Receive Date: 20130313
  Receipt Date: 20130326
  Transmission Date: 20140127
  Serious: Yes (Hospitalization, Other)
  Sender: FDA-Public Use
  Company Number: US-ABBOTT-13P-163-1060912-00

PATIENT
  Age: 67 None
  Sex: Male
  Weight: 69.92 kg

DRUGS (9)
  1. DEPAKOTE ER [Suspect]
     Indication: CONVULSION
     Dosage: T
     Dates: start: 1986, end: 20121217
  2. DEPAKOTE ER [Suspect]
     Indication: CONVULSION
     Dates: start: 1986, end: 20121217
  3. DEPAKOTE SPRINKLES [Suspect]
     Indication: CONVULSION
     Dates: start: 20121218
  4. JANUVIA [Concomitant]
     Indication: DIABETES MELLITUS
     Dates: start: 2011, end: 20121116
  5. METOPROLOL [Concomitant]
     Indication: HYPERTENSION
  6. DEXILANT [Concomitant]
     Indication: GASTROOESOPHAGEAL REFLUX DISEASE
     Dates: start: 201008
  7. LOMOTIL [Concomitant]
     Indication: DIARRHOEA
  8. TIMOLOL EYE GTTS [Concomitant]
     Indication: PROPHYLAXIS
     Dates: start: 2010
  9. TIMOLOL EYE GTTS [Concomitant]
     Indication: GLAUCOMA

REACTIONS (5)
  - Colon cancer [Recovered/Resolved]
  - Epigastric discomfort [Recovered/Resolved]
  - Dysphagia [Recovering/Resolving]
  - Oesophageal polyp [Recovered/Resolved]
  - Post procedural complication [None]
